FAERS Safety Report 24264396 (Version 1)
Quarter: 2024Q3

REPORT INFORMATION
  Report Type: Spontaneous
  Country: ES (occurrence: ES)
  Receive Date: 20240829
  Receipt Date: 20240829
  Transmission Date: 20241016
  Serious: Yes (Other)
  Sender: ANI
  Company Number: ES-ANIPHARMA-2024-ES-000092

PATIENT
  Age: 46 Year
  Sex: Male

DRUGS (1)
  1. CANDESARTAN CILEXETIL [Suspect]
     Active Substance: CANDESARTAN CILEXETIL
     Indication: Essential hypertension
     Dosage: 4 MG DAILY
     Route: 048
     Dates: start: 20240710

REACTIONS (1)
  - Erectile dysfunction [Unknown]
